FAERS Safety Report 18313248 (Version 6)
Quarter: 2022Q2

REPORT INFORMATION
  Report Type: Report from Study
  Country: KR (occurrence: None)
  Receive Date: 20200925
  Receipt Date: 20220526
  Transmission Date: 20220721
  Serious: Yes (Death, Hospitalization)
  Sender: FDA-Public Use
  Company Number: KR-EISAI MEDICAL RESEARCH-EC-2020-081044

PATIENT
  Age: 62 Year
  Sex: Female
  Weight: 77.3 kg

DRUGS (39)
  1. LENVIMA [Suspect]
     Active Substance: LENVATINIB
     Indication: Hepatocellular carcinoma
     Route: 048
     Dates: start: 20200722, end: 20200907
  2. LENVIMA [Suspect]
     Active Substance: LENVATINIB
     Route: 048
     Dates: start: 20200908, end: 20201119
  3. PLETAAL TAB [Concomitant]
     Indication: Cerebral artery stenosis
     Route: 048
     Dates: start: 20190514, end: 20201201
  4. LIPITOR TAB [Concomitant]
     Indication: Dyslipidaemia
     Route: 048
     Dates: start: 20200722, end: 20201127
  5. IRCODON TAB [Concomitant]
     Indication: Back pain
     Route: 048
     Dates: start: 20200807, end: 20200820
  6. NEURONTIN CAP [Concomitant]
     Indication: Back pain
     Route: 048
     Dates: start: 20200807, end: 20200820
  7. ADIPAM TAB [Concomitant]
     Indication: Urticaria
     Route: 048
     Dates: start: 20200810, end: 20200814
  8. DESOWEN LOTION [Concomitant]
     Indication: Urticaria
     Route: 061
     Dates: start: 20200810, end: 20200814
  9. HUONS DEXAMETHASONE DISODIUM PHOSPHATE INJ [Concomitant]
     Indication: Urticaria
     Route: 041
     Dates: start: 20200810, end: 20200810
  10. VEMLIDY [Concomitant]
     Active Substance: TENOFOVIR ALAFENAMIDE FUMARATE
     Indication: Chronic hepatitis B
     Route: 048
     Dates: start: 20200728, end: 20210121
  11. MUTERAN CAP [Concomitant]
     Indication: Prophylaxis
     Route: 048
     Dates: start: 20200831, end: 20200916
  12. MEGESIA SUSP [Concomitant]
     Indication: Decreased appetite
     Route: 048
     Dates: start: 20200831, end: 20201120
  13. DUOLAX TAB [Concomitant]
     Indication: Constipation
     Route: 048
     Dates: start: 20200831, end: 20200906
  14. OLMETEC TAB [Concomitant]
     Indication: Hypertension
     Route: 048
     Dates: start: 20200722, end: 20200804
  15. AMLODIPINE BESYLATE\OLMESARTAN MEDOXOMIL [Concomitant]
     Active Substance: AMLODIPINE BESYLATE\OLMESARTAN MEDOXOMIL
     Indication: Hypertension
     Dosage: 1 TABLET
     Route: 048
     Dates: start: 20200805, end: 20201105
  16. LASIX TAB [Concomitant]
     Indication: Oedema
     Route: 048
     Dates: start: 20200831, end: 20210121
  17. ALDACTONE FILM COATED TAB [Concomitant]
     Indication: Oedema peripheral
     Route: 048
     Dates: start: 20200831, end: 20210119
  18. ZOLPIDEM TARTRATE [Concomitant]
     Active Substance: ZOLPIDEM TARTRATE
     Indication: Insomnia
     Route: 048
     Dates: start: 20200908, end: 20201109
  19. LANSOPRAZOLE [Concomitant]
     Active Substance: LANSOPRAZOLE
     Indication: Prophylaxis
     Route: 048
     Dates: start: 20200917, end: 20201130
  20. GASTIIN CR [Concomitant]
     Indication: Prophylaxis
     Route: 048
     Dates: start: 20200928, end: 20201208
  21. LAMINA-G [Concomitant]
     Indication: Prophylaxis
     Route: 048
     Dates: start: 20200928, end: 20201109
  22. MAGMIL TAB [Concomitant]
     Indication: Prophylaxis
     Route: 048
     Dates: start: 20201013, end: 20210111
  23. PARAMACET TAB [Concomitant]
     Indication: Prophylaxis
     Route: 048
     Dates: start: 20201027, end: 20201109
  24. RAMNOS [Concomitant]
     Indication: Irritable bowel syndrome
     Route: 048
     Dates: start: 20200911, end: 20200916
  25. MOSAPRIDE CITRATE [Concomitant]
     Active Substance: MOSAPRIDE CITRATE
     Indication: Prophylaxis
     Route: 048
     Dates: start: 20200917, end: 20200927
  26. POLYBUTINE [Concomitant]
     Indication: Irritable bowel syndrome
     Route: 048
     Dates: start: 20200909, end: 20200927
  27. TRAMADOL HYDROCHLORIDE [Concomitant]
     Active Substance: TRAMADOL HYDROCHLORIDE
     Indication: Lumbar vertebral fracture
     Route: 048
     Dates: start: 20200919, end: 20200927
  28. LACTULOSE [Concomitant]
     Active Substance: LACTULOSE
     Indication: Constipation
     Route: 048
     Dates: start: 20200907, end: 20200908
  29. LEVOTHYROXINE SODIUM [Concomitant]
     Active Substance: LEVOTHYROXINE SODIUM
     Indication: Hypothyroidism
     Route: 065
     Dates: start: 20201113, end: 20201213
  30. POLYBUTINE [Concomitant]
     Indication: Irritable bowel syndrome
     Route: 048
     Dates: start: 20200909, end: 20200927
  31. MOSAPRIDE CITRATE [Concomitant]
     Active Substance: MOSAPRIDE CITRATE
     Indication: Prophylaxis
  32. INVANZ [Concomitant]
     Active Substance: ERTAPENEM SODIUM
     Indication: Abdominal pain upper
     Route: 065
     Dates: start: 20201130, end: 20201212
  33. ALMAGEL [Concomitant]
     Indication: Chronic gastritis
     Route: 048
     Dates: start: 20201109, end: 20201129
  34. ZANAPAM [Concomitant]
     Indication: Anxiety
     Route: 048
     Dates: start: 20201103, end: 20201128
  35. WELLBUTRIN [Concomitant]
     Active Substance: BUPROPION HYDROCHLORIDE
     Indication: Depression
     Dates: start: 20181111, end: 20181118
  36. MIRTAPIN [Concomitant]
     Indication: Anxiety
     Route: 048
     Dates: start: 20201111, end: 20201128
  37. MORPHINE HCl GUJU [Concomitant]
     Indication: Prophylaxis
     Dates: start: 20201106, end: 20201206
  38. OXYCODONE HYDROCHLORIDE [Concomitant]
     Active Substance: OXYCODONE HYDROCHLORIDE
     Indication: Prophylaxis
     Route: 048
     Dates: start: 20201120, end: 20210107
  39. HYDROCORTISONE HANYU [Concomitant]
     Indication: Secondary adrenocortical insufficiency
     Route: 048
     Dates: start: 20201116, end: 20210121

REACTIONS (4)
  - Gastritis [Recovered/Resolved]
  - Oedema peripheral [Recovering/Resolving]
  - Abdominal pain upper [Recovering/Resolving]
  - Malignant neoplasm progression [Fatal]

NARRATIVE: CASE EVENT DATE: 20200801
